FAERS Safety Report 6633195-X (Version None)
Quarter: 2010Q1

REPORT INFORMATION
  Report Type: 
  Country: None (occurrence: None)
  Receive Date: 20100312
  Receipt Date: 20100308
  Transmission Date: 20100710
  Serious: Yes (Death)
  Sender: FDA-Public Use
  Company Number: PHHY2010CH11356

PATIENT
  Sex: Male

DRUGS (5)
  1. GLEEVEC [Suspect]
     Indication: GASTROINTESTINAL STROMAL TUMOUR
     Dosage: 800 MG/DAY
     Dates: start: 20091222, end: 20100101
  2. COVERSUM [Concomitant]
     Dosage: 4 MG/D
  3. ASPIRIN [Concomitant]
  4. INEGY [Concomitant]
     Dosage: 10/20 MG/D
  5. IMPORTAL [Concomitant]
     Dosage: 20 ML/D

REACTIONS (2)
  - GENERAL PHYSICAL HEALTH DETERIORATION [None]
  - HAEMORRHAGE [None]
